FAERS Safety Report 22655288 (Version 1)
Quarter: 2023Q2

REPORT INFORMATION
  Report Type: Other
  Country: ES (occurrence: ES)
  Receive Date: 20230629
  Receipt Date: 20230629
  Transmission Date: 20230722
  Serious: Yes (Other)
  Sender: FDA-Public Use
  Company Number: None

PATIENT

DRUGS (2)
  1. ABIRATERONE ACETATE [Suspect]
     Active Substance: ABIRATERONE ACETATE
     Indication: Prostate cancer
     Dosage: 1000 MILLIGRAM, 24 HOURS
     Route: 048
     Dates: start: 20230404, end: 20230522
  2. OPDIVO [Concomitant]
     Active Substance: NIVOLUMAB
     Indication: Lung neoplasm malignant
     Dosage: 480 MILLIGRAM, 1 MONTH
     Route: 042
     Dates: start: 20220211

REACTIONS (2)
  - Hyperbilirubinaemia [Recovering/Resolving]
  - Hepatic cytolysis [Recovering/Resolving]

NARRATIVE: CASE EVENT DATE: 20230522
